FAERS Safety Report 24674160 (Version 1)
Quarter: 2024Q4

REPORT INFORMATION
  Report Type: Spontaneous
  Country: IT (occurrence: IT)
  Receive Date: 20241128
  Receipt Date: 20241128
  Transmission Date: 20250115
  Serious: Yes (Life-Threatening, Hospitalization)
  Sender: TEVA
  Company Number: IT-TEVA-VS-3267513

PATIENT
  Age: 47 Year
  Sex: Male

DRUGS (3)
  1. LEVOTHYROXINE [Suspect]
     Active Substance: LEVOTHYROXINE
     Indication: Hypothyroidism
     Route: 065
  2. VITAMIN D NOS [Concomitant]
     Active Substance: CHOLECALCIFEROL\ERGOCALCIFEROL
     Indication: Product used for unknown indication
     Route: 065
  3. IRON DEXTRAN [Concomitant]
     Active Substance: IRON DEXTRAN
     Indication: Product used for unknown indication
     Route: 065

REACTIONS (3)
  - Decompensated hypothyroidism [Recovering/Resolving]
  - Malabsorption [Recovering/Resolving]
  - Intentional product misuse [Unknown]
